FAERS Safety Report 5063842-8 (Version None)
Quarter: 2006Q3

REPORT INFORMATION
  Report Type: 
  Country: None (occurrence: None)
  Receive Date: 20060726
  Receipt Date: 20060726
  Transmission Date: 20061208
  Serious: No
  Sender: FDA-Public Use
  Company Number: None

PATIENT
  Sex: Female
  Weight: 86.1834 kg

DRUGS (3)
  1. MERREM [Suspect]
     Indication: PSEUDOMONAS INFECTION
     Dosage: 1500MG EVERY 8 HOURS I.V.
     Route: 042
     Dates: start: 20060630, end: 20060703
  2. MERREM [Suspect]
     Indication: SINUSITIS
     Dosage: 1500MG EVERY 8 HOURS I.V.
     Route: 042
     Dates: start: 20060630, end: 20060703
  3. MERREM [Suspect]

REACTIONS (2)
  - INFUSION RELATED REACTION [None]
  - RASH [None]
